FAERS Safety Report 9714186 (Version 2)
Quarter: 2015Q3

REPORT INFORMATION
  Report Type: Spontaneous
  Country: US (occurrence: US)
  Receive Date: 20131126
  Receipt Date: 20150803
  Transmission Date: 20151125
  Serious: No
  Sender: FDA-Public Use
  Company Number: US-GILEAD-2008-0019199

PATIENT
  Age: 63 Year
  Sex: Female
  Weight: 92.99 kg

DRUGS (4)
  1. NISOLDIPINE ER [Concomitant]
     Active Substance: NISOLDIPINE
     Route: 048
  2. PRINIVIL [Concomitant]
     Active Substance: LISINOPRIL
     Route: 048
  3. REVATIO [Concomitant]
     Active Substance: SILDENAFIL CITRATE
     Route: 048
  4. LETAIRIS [Suspect]
     Active Substance: AMBRISENTAN
     Indication: PULMONARY ARTERIAL HYPERTENSION
     Route: 048
     Dates: start: 20081112

REACTIONS (2)
  - Eye swelling [Unknown]
  - Unevaluable event [Unknown]
